APPROVED DRUG PRODUCT: CIMETIDINE HYDROCHLORIDE
Active Ingredient: CIMETIDINE HYDROCHLORIDE
Strength: EQ 300MG BASE/2ML
Dosage Form/Route: INJECTABLE;INJECTION
Application: A074005 | Product #001
Applicant: PH HEALTH LTD
Approved: Aug 31, 1994 | RLD: No | RS: No | Type: DISCN